FAERS Safety Report 13345740 (Version 2)
Quarter: 2017Q1

REPORT INFORMATION
  Report Type: Report from Study
  Country: US (occurrence: US)
  Receive Date: 20170317
  Receipt Date: 20170324
  Transmission Date: 20170428
  Serious: Yes (Other)
  Sender: FDA-Public Use
  Company Number: US-PFIZER INC-2017034660

PATIENT
  Age: 78 Year
  Sex: Male

DRUGS (2)
  1. SUTENT [Suspect]
     Active Substance: SUNITINIB MALATE
     Dosage: 50 MG, DAILY
     Route: 048
     Dates: start: 20170117
  2. SUTENT [Suspect]
     Active Substance: SUNITINIB MALATE
     Indication: RENAL CELL CARCINOMA
     Dosage: 50 MG, DAILY
     Route: 048
     Dates: start: 20170113

REACTIONS (14)
  - Faeces soft [Unknown]
  - Decreased appetite [Unknown]
  - Diabetes mellitus inadequate control [Unknown]
  - Hypertension [Unknown]
  - Circumstance or information capable of leading to medication error [Unknown]
  - Urine output decreased [Unknown]
  - Pollakiuria [Unknown]
  - Blood glucose decreased [Unknown]
  - Nausea [Unknown]
  - Confusional state [Unknown]
  - Constipation [Unknown]
  - Dizziness [Unknown]
  - Pain [Recovering/Resolving]
  - Fatigue [Unknown]

NARRATIVE: CASE EVENT DATE: 20170320
